FAERS Safety Report 24327515 (Version 1)
Quarter: 2024Q3

REPORT INFORMATION
  Report Type: Report from Study
  Country: AU (occurrence: AU)
  Receive Date: 20240917
  Receipt Date: 20240917
  Transmission Date: 20241016
  Serious: Yes (Other)
  Sender: REGENERON
  Company Number: AU-BAYER-2024A130078

PATIENT
  Sex: Male

DRUGS (1)
  1. EYLEA [Suspect]
     Active Substance: AFLIBERCEPT
     Indication: Product used for unknown indication
     Dosage: STRENGTH: 40 MG/ML

REACTIONS (1)
  - Eye operation [Not Recovered/Not Resolved]
